FAERS Safety Report 7130795-8 (Version None)
Quarter: 2010Q4

REPORT INFORMATION
  Report Type: 
  Country: None (occurrence: None)
  Receive Date: 20101201
  Receipt Date: 20101125
  Transmission Date: 20110411
  Serious: Yes (Other)
  Sender: FDA-Public Use
  Company Number: CA-JNJCH-2010027210

PATIENT
  Age: 65 Year
  Sex: Female
  Weight: 48.5 kg

DRUGS (2)
  1. LISTERINE WHITENING DISOLVING STRIPS [Suspect]
     Indication: DENTAL CARE
     Dosage: TEXT:TWO STRIPS ONCE
     Route: 048
     Dates: start: 20101124, end: 20101124
  2. ACETYLSALICYLIC ACID [Concomitant]
     Indication: BLOOD DISORDER
     Dosage: TEXT:ONE DAILY
     Route: 065

REACTIONS (4)
  - BURNING SENSATION [None]
  - CHEILITIS [None]
  - GINGIVAL PAIN [None]
  - LIP SWELLING [None]
